FAERS Safety Report 6499892-4 (Version None)
Quarter: 2009Q4

REPORT INFORMATION
  Report Type: 
  Country: None (occurrence: None)
  Receive Date: 20091214
  Receipt Date: 20091214
  Transmission Date: 20100525
  Serious: Yes (Life-Threatening)
  Sender: FDA-Public Use
  Company Number: None

PATIENT
  Age: 63 Year
  Sex: Male
  Weight: 92 kg

DRUGS (1)
  1. TEMSIROLIMUS 25 MG/ML WYETH [Suspect]
     Indication: RENAL CELL CARCINOMA
     Dosage: 25 MG ONE TIME IV
     Route: 042
     Dates: start: 20090513, end: 20090513

REACTIONS (3)
  - DYSPNOEA [None]
  - ERYTHEMA [None]
  - FLUSHING [None]
